FAERS Safety Report 10500830 (Version 1)
Quarter: 2014Q4

REPORT INFORMATION
  Report Type: Spontaneous
  Country: ES (occurrence: ES)
  Receive Date: 20141007
  Receipt Date: 20141007
  Transmission Date: 20150528
  Serious: Yes (Hospitalization, Disabling)
  Sender: FDA-Public Use
  Company Number: ES-009507513-1409ESP014840

PATIENT
  Age: 70 Year
  Sex: Female
  Weight: 90 kg

DRUGS (5)
  1. EZETROL [Concomitant]
     Active Substance: EZETIMIBE
     Indication: DYSLIPIDAEMIA
     Dosage: 1 TABLET:  EVERY 24 HOURS
     Route: 048
     Dates: start: 20100505, end: 20140915
  2. JANUMET [Suspect]
     Active Substance: METFORMIN HYDROCHLORIDE\SITAGLIPTIN PHOSPHATE
     Indication: DIABETES MELLITUS
     Dosage: 1 TABLET:  EVERY 12 HOURS
     Route: 048
     Dates: start: 20100505, end: 20140901
  3. RASILEZ [Concomitant]
     Active Substance: ALISKIREN
     Indication: HYPERTENSION
     Dosage: 1 TABLET:  EVERY 24 HOURS
     Route: 048
     Dates: start: 20111111, end: 20140917
  4. ATENOLOL NORMON [Concomitant]
     Dosage: 1 TABLET:  EVERY 24 HOURS
     Route: 048
     Dates: start: 20100505
  5. OMEPRAZOL DAVUR [Concomitant]
     Dosage: 1 CAPSULE: EVERY 24 HOURS
     Route: 048
     Dates: start: 20100505, end: 20140917

REACTIONS (1)
  - Pancreatic carcinoma [Not Recovered/Not Resolved]

NARRATIVE: CASE EVENT DATE: 20140905
